FAERS Safety Report 7790430-2 (Version None)
Quarter: 2011Q3

REPORT INFORMATION
  Report Type: 
  Country: None (occurrence: None)
  Receive Date: 20110930
  Receipt Date: 20110928
  Transmission Date: 20111222
  Serious: Yes (Other)
  Sender: FDA-Public Use
  Company Number: JP-PFIZER INC-2011202129

PATIENT
  Age: 67 Year
  Sex: Female

DRUGS (7)
  1. DIFLUCAN [Suspect]
     Indication: OESOPHAGEAL CANDIDIASIS
     Dosage: UNK
     Route: 048
     Dates: start: 20110801, end: 20110801
  2. OLMESARTAN MEDOXOMIL [Suspect]
  3. LASIX [Suspect]
  4. AZATHIOPRINE [Suspect]
  5. PREDNISOLONE [Suspect]
  6. ALL OTHER THERAPEUTIC PRODUCTS [Suspect]
  7. AMLODIPINE [Suspect]

REACTIONS (3)
  - HAEMOLYTIC ANAEMIA [None]
  - PLATELET COUNT DECREASED [None]
  - HAEMOGLOBIN DECREASED [None]
